FAERS Safety Report 11469660 (Version 2)
Quarter: 2015Q3

REPORT INFORMATION
  Report Type: Spontaneous
  Country: US (occurrence: US)
  Receive Date: 20150903
  Receipt Date: 20150903
  Transmission Date: 20151125
  Serious: No
  Sender: FDA-Public Use
  Company Number: US-ELI_LILLY_AND_COMPANY-US201110005327

PATIENT
  Age: 62 Year
  Sex: Female

DRUGS (1)
  1. CYMBALTA [Suspect]
     Active Substance: DULOXETINE HYDROCHLORIDE
     Indication: DEPRESSION
     Dosage: 30 MG, TID

REACTIONS (6)
  - Dental caries [Unknown]
  - Teeth brittle [Unknown]
  - Dry mouth [Unknown]
  - Drug ineffective [Unknown]
  - Breath odour [Unknown]
  - Depression [Unknown]
